FAERS Safety Report 12555658 (Version 2)
Quarter: 2016Q3

REPORT INFORMATION
  Report Type: Spontaneous
  Country: PR (occurrence: US)
  Receive Date: 20160714
  Receipt Date: 20160824
  Transmission Date: 20161109
  Serious: Yes (Other)
  Sender: FDA-Public Use
  Company Number: PR-PFIZER INC-2016330754

PATIENT
  Age: 71 Year
  Sex: Female
  Weight: 67.12 kg

DRUGS (5)
  1. IBRANCE [Suspect]
     Active Substance: PALBOCICLIB
     Indication: BREAST CANCER FEMALE
     Dosage: 125 MG, ONE CAPSULE DAILY FOR 21 DAYS
     Route: 048
     Dates: start: 20160503
  2. NEUPOGEN [Concomitant]
     Active Substance: FILGRASTIM
     Indication: PROPHYLAXIS
     Dosage: 480 UG, DAILY
     Route: 058
     Dates: start: 20160610
  3. HALAVEN [Concomitant]
     Active Substance: ERIBULIN MESYLATE
     Indication: BREAST CANCER
     Dosage: 1.68MG INTRAVENOUS INJECTION DAY ONE AND DAY EIGHT AS INDICATED BY PHYSICIAN
     Route: 042
     Dates: start: 20160212
  4. FASLODEX [Concomitant]
     Active Substance: FULVESTRANT
     Indication: BREAST CANCER
     Dosage: 500 MG, CYCLIC, 500MG INTRAMUSCULAR INJECTION EVERY 28 DAYS
     Route: 030
     Dates: start: 20160615
  5. IBRANCE [Suspect]
     Active Substance: PALBOCICLIB
     Dosage: 125 MG, ONE CAPSULE DAILY FOR 21 DAYS
     Route: 048

REACTIONS (3)
  - Neutropenia [Unknown]
  - Abdominal discomfort [Unknown]
  - Agranulocytosis [Unknown]

NARRATIVE: CASE EVENT DATE: 2016
